FAERS Safety Report 6448759-6 (Version None)
Quarter: 2009Q4

REPORT INFORMATION
  Report Type: 
  Country: None (occurrence: None)
  Receive Date: 20091120
  Receipt Date: 20091006
  Transmission Date: 20100525
  Serious: No
  Sender: FDA-Public Use
  Company Number: US-KINGPHARMUSA00001-K200901249

PATIENT
  Sex: Female
  Weight: 52.154 kg

DRUGS (8)
  1. FLECTOR [Suspect]
     Indication: FIBROMYALGIA
     Dosage: 1 PATCH, BID
     Dates: start: 20090701, end: 20090929
  2. FLECTOR [Suspect]
     Indication: ARTHRALGIA
  3. FLECTOR [Suspect]
     Indication: NECK PAIN
  4. NEXIUM [Concomitant]
     Indication: GASTROOESOPHAGEAL REFLUX DISEASE
     Dosage: UNK
  5. GUAIFENESIN [Concomitant]
     Indication: FIBROMYALGIA
     Dosage: UNK
  6. ANGELIQ [Concomitant]
     Indication: HORMONE REPLACEMENT THERAPY
     Dosage: UNK
  7. AMBIEN [Concomitant]
     Dosage: UNK
  8. PROBIOTIC FEMINA [Concomitant]
     Indication: PROBIOTIC THERAPY

REACTIONS (4)
  - ANXIETY [None]
  - FEELING ABNORMAL [None]
  - IRRITABILITY [None]
  - WITHDRAWAL SYNDROME [None]
